FAERS Safety Report 4865512-5 (Version None)
Quarter: 2005Q4

REPORT INFORMATION
  Report Type: 
  Country: None (occurrence: None)
  Receive Date: 20051223
  Receipt Date: 20011212
  Transmission Date: 20060501
  Serious: Yes (Hospitalization)
  Sender: FDA-Public Use
  Company Number: SE-ROCHE-303484

PATIENT
  Age: 59 Year
  Sex: Female
  Weight: 65 kg

DRUGS (12)
  1. DACLIZUMAB [Suspect]
     Dosage: 5 DOSES RECEIVED.
     Route: 042
     Dates: start: 20010816, end: 20011005
  2. MYCOPHENOLATE MOFETIL [Suspect]
     Route: 065
     Dates: start: 20010816
  3. CYCLOSPORINE [Suspect]
     Route: 065
     Dates: start: 20010816
  4. PREDNISOLONE [Suspect]
     Route: 065
     Dates: start: 20010818
  5. PRAVASTATIN [Concomitant]
     Dates: start: 20000825
  6. NYSTATIN [Concomitant]
     Dates: start: 20000816, end: 20000927
  7. ZOLPIDEM TARTRATE [Concomitant]
     Dates: start: 20000827, end: 20001103
  8. PARACETAMOL [Concomitant]
     Dates: start: 20000927, end: 20001010
  9. LIDOCAINE [Concomitant]
     Dates: start: 20000930, end: 20001008
  10. FLUCONAZOLE [Concomitant]
     Dates: start: 20000926, end: 20001002
  11. BACTRIM DS [Concomitant]
     Dates: start: 20000817
  12. SUKRALFAT [Concomitant]
     Dates: start: 20000817

REACTIONS (3)
  - CYTOMEGALOVIRUS INFECTION [None]
  - PHARYNGEAL CANDIDIASIS [None]
  - PHARYNGITIS [None]
